FAERS Safety Report 7994079-8 (Version None)
Quarter: 2011Q4

REPORT INFORMATION
  Report Type: 
  Country: None (occurrence: None)
  Receive Date: 20111220
  Receipt Date: 20111208
  Transmission Date: 20120403
  Serious: Yes (Hospitalization)
  Sender: FDA-Public Use
  Company Number: US-BAYER-2011-040266

PATIENT
  Age: 34 Year
  Sex: Female
  Weight: 63.492 kg

DRUGS (5)
  1. YAZ [Suspect]
     Dosage: UNK
     Route: 048
     Dates: start: 20080101, end: 20090101
  2. GLUMETZA [Concomitant]
     Dosage: UNK
     Route: 048
     Dates: start: 20080101, end: 20100101
  3. AMITRIPTYLINE HCL [Concomitant]
     Dosage: UNK
     Route: 048
     Dates: start: 20080101, end: 20100101
  4. SUDAFED 12 HOUR [Concomitant]
     Route: 048
  5. HYDROCHLOROTHIAZIDE [Concomitant]
     Dosage: UNK
     Route: 048
     Dates: start: 20080101, end: 20100101

REACTIONS (9)
  - CHOLELITHIASIS [None]
  - CHOLECYSTITIS [None]
  - INJURY [None]
  - GENERAL PHYSICAL HEALTH DETERIORATION [None]
  - ABDOMINAL PAIN [None]
  - WEIGHT DECREASED [None]
  - EMOTIONAL DISTRESS [None]
  - ANXIETY [None]
  - PAIN [None]
